FAERS Safety Report 6956927-X (Version None)
Quarter: 2010Q3

REPORT INFORMATION
  Report Type: 
  Country: None (occurrence: None)
  Receive Date: 20100830
  Receipt Date: 20100819
  Transmission Date: 20110219
  Serious: Yes (Hospitalization)
  Sender: FDA-Public Use
  Company Number: AR-AMGEN-QUU413249

PATIENT
  Age: 47 Year
  Sex: Male

DRUGS (3)
  1. ENBREL [Suspect]
     Indication: PSORIATIC ARTHROPATHY
     Route: 058
     Dates: start: 20060101, end: 20080601
  2. ENBREL [Suspect]
     Route: 058
     Dates: start: 20091201, end: 20100301
  3. DICLOFENAC [Concomitant]
     Indication: PAIN
     Dosage: ONE TABLET, FREQUENCY UNSPECIFIED
     Route: 048

REACTIONS (3)
  - OSTEONECROSIS [None]
  - RETROPERITONEAL NEOPLASM METASTATIC [None]
  - SEMINOMA [None]
